FAERS Safety Report 5814673-X (Version None)
Quarter: 2008Q3

REPORT INFORMATION
  Report Type: 
  Country: None (occurrence: None)
  Receive Date: 20080718
  Receipt Date: 20080317
  Transmission Date: 20090109
  Serious: No
  Sender: FDA-Public Use
  Company Number: US-KINGPHARMUSA00001-K200800323

PATIENT

DRUGS (2)
  1. LEVOXYL [Suspect]
     Dosage: UNK, QD IN AM, PRIOR TO 1ST MEAL OF THE DAY
  2. LEVOXYL [Suspect]
     Dosage: UNK, QD IN PM

REACTIONS (3)
  - ABDOMINAL PAIN [None]
  - DIARRHOEA [None]
  - INAPPROPRIATE SCHEDULE OF DRUG ADMINISTRATION [None]
